FAERS Safety Report 19113820 (Version 4)
Quarter: 2021Q2

REPORT INFORMATION
  Report Type: Report from Study
  Country: US (occurrence: US)
  Receive Date: 20210408
  Receipt Date: 20210426
  Transmission Date: 20210717
  Serious: Yes (Hospitalization, Other)
  Sender: FDA-Public Use
  Company Number: US-JNJFOC-20210345751

PATIENT
  Age: 49 Year
  Sex: Female
  Weight: 78.6 kg

DRUGS (3)
  1. MACITENTAN [Suspect]
     Active Substance: MACITENTAN
     Indication: PULMONARY HYPERTENSION
     Route: 048
     Dates: start: 202103
  2. XARELTO [Suspect]
     Active Substance: RIVAROXABAN
     Indication: PRODUCT USED FOR UNKNOWN INDICATION
     Route: 065
     Dates: start: 202101
  3. REMODULIN [Concomitant]
     Active Substance: TREPROSTINIL

REACTIONS (5)
  - Faeces discoloured [Unknown]
  - Blood pressure fluctuation [Unknown]
  - Anaemia [Unknown]
  - Dizziness [Unknown]
  - Haemorrhage [Unknown]

NARRATIVE: CASE EVENT DATE: 202103
